FAERS Safety Report 9016907 (Version 2)
Quarter: 2013Q1

REPORT INFORMATION
  Report Type: Spontaneous
  Country: JP (occurrence: JP)
  Receive Date: 20130117
  Receipt Date: 20130130
  Transmission Date: 20140127
  Serious: Yes (Other)
  Sender: FDA-Public Use
  Company Number: JP-VERTEX PHARMACEUTICALS INC.-2013-000667

PATIENT
  Age: 69 Year
  Sex: Female

DRUGS (8)
  1. TELAVIC [Suspect]
     Indication: CHRONIC HEPATITIS C
     Dosage: 2250 MG, QD
     Route: 048
     Dates: start: 20121114
  2. TELAVIC [Suspect]
     Dosage: 2250 MG, QD
     Route: 048
     Dates: start: 20121029, end: 20121105
  3. TELAVIC [Suspect]
     Dosage: 1500 MG, QD
     Route: 048
     Dates: start: 20121029, end: 20121105
  4. RIBAVIRIN [Concomitant]
     Dosage: 400 MG, QD
     Route: 048
     Dates: start: 20121015, end: 20130102
  5. RIBAVIRIN [Concomitant]
     Dosage: 400 MG, QD
     Route: 048
     Dates: start: 20130119
  6. PEGINTRON [Concomitant]
     Dosage: 1.5 ?G/ KG, QW
     Route: 058
     Dates: start: 20121015, end: 20130102
  7. PEGINTRON [Concomitant]
     Dosage: UNK
     Route: 058
     Dates: start: 20130119
  8. NEO-MINOPHAGEN C [Concomitant]
     Dosage: 1 DF, QD
     Route: 042

REACTIONS (3)
  - Enterocolitis [Recovered/Resolved]
  - Pneumonia [Recovered/Resolved]
  - Drug eruption [Recovered/Resolved]
